FAERS Safety Report 16823054 (Version 1)
Quarter: 2019Q3

REPORT INFORMATION
  Report Type: Report from Study
  Country: None (occurrence: DK)
  Receive Date: 20190918
  Receipt Date: 20190918
  Transmission Date: 20191005
  Serious: Yes (Hospitalization)
  Sender: FDA-Public Use
  Company Number: DK-ABBVIE-19P-044-2921504-00

PATIENT
  Age: 43 Year
  Sex: Female

DRUGS (15)
  1. IBRUTINIB [Suspect]
     Active Substance: IBRUTINIB
     Indication: CHRONIC LYMPHOCYTIC LEUKAEMIA
     Route: 048
     Dates: start: 20180712, end: 20190408
  2. ASACOL [Concomitant]
     Active Substance: MESALAMINE
     Indication: COLITIS
     Dates: start: 20170516, end: 20190408
  3. URSOCHOL [Concomitant]
     Active Substance: URSODIOL
     Indication: CHOLESTASIS
  4. PANTOPRAZOL [Concomitant]
     Active Substance: PANTOPRAZOLE SODIUM
     Indication: ANTACID THERAPY
     Dates: start: 20170717, end: 20190408
  5. UNIKALK [Concomitant]
     Indication: VITAMIN D
     Dates: start: 20150312, end: 20190408
  6. VENETOCLAX. [Suspect]
     Active Substance: VENETOCLAX
     Route: 048
     Dates: start: 20170921, end: 20170927
  7. VENETOCLAX. [Suspect]
     Active Substance: VENETOCLAX
     Route: 048
     Dates: start: 20170928, end: 20171004
  8. URSOCHOL [Concomitant]
     Active Substance: URSODIOL
     Indication: COLITIS
     Dates: start: 20150312, end: 20190408
  9. ASACOL [Concomitant]
     Active Substance: MESALAMINE
     Indication: CHOLESTASIS
  10. VENETOCLAX. [Suspect]
     Active Substance: VENETOCLAX
     Route: 048
     Dates: start: 20170914, end: 20170920
  11. ADPORT [Concomitant]
     Active Substance: TACROLIMUS
     Indication: IMMUNOSUPPRESSION
     Dates: start: 20171026, end: 20190408
  12. VENETOCLAX. [Suspect]
     Active Substance: VENETOCLAX
     Indication: CHRONIC LYMPHOCYTIC LEUKAEMIA
     Route: 048
     Dates: start: 20170907, end: 20170913
  13. VENETOCLAX. [Suspect]
     Active Substance: VENETOCLAX
     Route: 048
     Dates: start: 20171005, end: 20180905
  14. PIPERACILLIN PIPERACIL/TAZOBACTAM [Concomitant]
     Indication: INFECTION
     Dates: start: 20190408, end: 20190408
  15. NATRIUM CHLORIDUM INFUSION [Concomitant]
     Indication: FLUID REPLACEMENT
     Dates: start: 20190408, end: 20190408

REACTIONS (1)
  - Gastroenteritis [Recovered/Resolved]

NARRATIVE: CASE EVENT DATE: 20190408
